FAERS Safety Report 7879532-X (Version None)
Quarter: 2011Q4

REPORT INFORMATION
  Report Type: 
  Country: None (occurrence: None)
  Receive Date: 20111101
  Receipt Date: 20111019
  Transmission Date: 20120403
  Serious: Yes (Hospitalization)
  Sender: FDA-Public Use
  Company Number: US-GLAXOSMITHKLINE-A0841058A

PATIENT
  Age: 67 Year
  Sex: Male
  Weight: 96.8 kg

DRUGS (8)
  1. PRILOSEC [Concomitant]
  2. GLIMEPIRIDE [Concomitant]
  3. AVANDIA [Suspect]
     Indication: DIABETES MELLITUS
     Dosage: 8MG PER DAY
     Route: 048
     Dates: start: 20060101, end: 20081109
  4. NASACORT [Concomitant]
  5. COZAAR [Concomitant]
  6. FLUOXETINE HCL [Concomitant]
  7. ATENOLOL [Concomitant]
  8. LIPITOR [Concomitant]

REACTIONS (20)
  - LEFT VENTRICULAR DYSFUNCTION [None]
  - HYPOXIA [None]
  - ASTHENIA [None]
  - ACUTE CORONARY SYNDROME [None]
  - ANAEMIA [None]
  - CHRONIC OBSTRUCTIVE PULMONARY DISEASE [None]
  - MITRAL VALVE INCOMPETENCE [None]
  - ACIDOSIS [None]
  - LEUKOPENIA [None]
  - BRONCHITIS CHRONIC [None]
  - VENTRICULAR EXTRASYSTOLES [None]
  - LEFT ATRIAL DILATATION [None]
  - CORONARY ARTERY DISEASE [None]
  - CAROTID ARTERY STENOSIS [None]
  - CONDITION AGGRAVATED [None]
  - PNEUMONIA [None]
  - ISCHAEMIC CARDIOMYOPATHY [None]
  - MYOCARDIAL INFARCTION [None]
  - TRICUSPID VALVE INCOMPETENCE [None]
  - BUNDLE BRANCH BLOCK LEFT [None]
